FAERS Safety Report 8237030-8 (Version None)
Quarter: 2012Q1

REPORT INFORMATION
  Report Type: 
  Country: None (occurrence: None)
  Receive Date: 20120327
  Receipt Date: 20120320
  Transmission Date: 20120608
  Serious: Yes (Death, Other)
  Sender: FDA-Public Use
  Company Number: US-CELGENEUS-163-50794-12032409

PATIENT

DRUGS (2)
  1. VIDAZA [Suspect]
     Dosage: 75 MILLIGRAM/SQ. METER
     Route: 065
  2. REVLIMID [Suspect]
     Dosage: 10 MILLIGRAM
     Route: 048

REACTIONS (19)
  - THROMBOSIS [None]
  - NAUSEA [None]
  - FATIGUE [None]
  - DIARRHOEA [None]
  - DISEASE PROGRESSION [None]
  - LUNG DISORDER [None]
  - CEREBRAL HAEMORRHAGE [None]
  - MYELODYSPLASTIC SYNDROME TRANSFORMATION [None]
  - ACUTE MYELOID LEUKAEMIA [None]
  - ADVERSE EVENT [None]
  - DIZZINESS [None]
  - DEATH [None]
  - FEBRILE NEUTROPENIA [None]
  - INJECTION SITE REACTION [None]
  - CARDIAC DISORDER [None]
  - INFECTION [None]
  - CONSTIPATION [None]
  - DYSPNOEA [None]
  - RASH [None]
